FAERS Safety Report 24256715 (Version 2)
Quarter: 2024Q3

REPORT INFORMATION
  Report Type: Spontaneous
  Country: GB (occurrence: GB)
  Receive Date: 20240828
  Receipt Date: 20240909
  Transmission Date: 20241017
  Serious: Yes (Hospitalization, Other)
  Sender: CELLTRION
  Company Number: GB-CELLTRION INC.-2024GB020259

PATIENT

DRUGS (1)
  1. YUFLYMA [Suspect]
     Active Substance: ADALIMUMAB-AATY
     Indication: Psoriatic arthropathy
     Dosage: 40MG PREFILLED PEN
     Route: 058
     Dates: start: 202404

REACTIONS (3)
  - Spinal operation [Unknown]
  - Bacterial infection [Unknown]
  - Intentional dose omission [Unknown]
